FAERS Safety Report 7610752-5 (Version None)
Quarter: 2011Q3

REPORT INFORMATION
  Report Type: 
  Country: None (occurrence: None)
  Receive Date: 20110715
  Receipt Date: 20110711
  Transmission Date: 20111222
  Serious: Yes (Hospitalization, Other)
  Sender: FDA-Public Use
  Company Number: US-ELI_LILLY_AND_COMPANY-US200910005574

PATIENT
  Sex: Male
  Weight: 113.38 kg

DRUGS (14)
  1. CLOPIDOGREL [Concomitant]
     Indication: THROMBOSIS
     Dosage: UNK
  2. TOPROL-XL [Concomitant]
     Indication: BLOOD PRESSURE
     Dosage: UNK
  3. METOPROLOL TARTRATE [Concomitant]
     Indication: BLOOD PRESSURE
     Dosage: UNK
  4. HYDROCHLOROTHIAZID [Concomitant]
     Indication: DIURETIC THERAPY
     Dosage: UNK
     Dates: start: 20060111, end: 20071227
  5. METFORMIN HCL [Concomitant]
     Indication: DIABETES MELLITUS
     Dosage: UNK
     Dates: start: 20060116, end: 20081119
  6. QUINAPRIL HCL [Concomitant]
     Indication: BLOOD PRESSURE
     Dosage: UNK
  7. TYLENOL                                 /SCH/ [Concomitant]
     Dosage: UNK, AS NEEDED
  8. ALPRAZOLAM [Concomitant]
     Indication: ANXIETY
     Dosage: UNK
     Dates: start: 20060919, end: 20060929
  9. CALCIUM CARBONATE [Concomitant]
     Indication: DYSPEPSIA
     Dosage: UNK, AS NEEDED
  10. LANTUS [Concomitant]
     Dosage: UNK
     Dates: start: 20080211
  11. GLUCOVANCE [Concomitant]
     Indication: DIABETES MELLITUS
     Dosage: UNK, DAILY (1/D)
  12. PLAVIX [Concomitant]
     Indication: THROMBOSIS
     Dosage: UNK
  13. BYETTA [Suspect]
     Indication: DIABETES MELLITUS
     Dosage: UNK, UNKNOWN
     Route: 065
     Dates: start: 20000201, end: 20081119
  14. COREG [Concomitant]
     Indication: BLOOD PRESSURE
     Dosage: UNK
     Dates: start: 20080211, end: 20080325

REACTIONS (4)
  - PANCREATITIS ACUTE [None]
  - PANCREATIC INJURY [None]
  - OFF LABEL USE [None]
  - BLOOD GLUCOSE FLUCTUATION [None]
